FAERS Safety Report 20139021 (Version 1)
Quarter: 2021Q4

REPORT INFORMATION
  Report Type: Spontaneous
  Country: CN (occurrence: None)
  Receive Date: 20211202
  Receipt Date: 20211202
  Transmission Date: 20220303
  Serious: Yes (Other)
  Sender: FDA-Public Use
  Company Number: CN-ROCHE-2965095

PATIENT
  Age: 65 Year
  Sex: Male

DRUGS (17)
  1. MABTHERA [Suspect]
     Active Substance: RITUXIMAB
     Indication: Diffuse large B-cell lymphoma
     Dosage: FOR 3 CYCLES
     Route: 065
     Dates: end: 20180515
  2. MABTHERA [Suspect]
     Active Substance: RITUXIMAB
     Dosage: ON 06 SEP 2021, 27 SEP 2021. ON DAY 0
     Route: 065
  3. CYCLOPHOSPHAMIDE [Concomitant]
     Active Substance: CYCLOPHOSPHAMIDE
     Indication: Diffuse large B-cell lymphoma
  4. DOXORUBICIN [Concomitant]
     Active Substance: DOXORUBICIN
     Indication: Diffuse large B-cell lymphoma
  5. VINCRISTINE [Concomitant]
     Active Substance: VINCRISTINE
     Indication: Diffuse large B-cell lymphoma
  6. PREDNISONE [Concomitant]
     Active Substance: PREDNISONE
     Indication: Diffuse large B-cell lymphoma
  7. GEMCITABINE [Concomitant]
     Active Substance: GEMCITABINE
     Indication: Diffuse large B-cell lymphoma
     Dosage: FOR 3 CYCLES
     Dates: end: 20180515
  8. GEMCITABINE [Concomitant]
     Active Substance: GEMCITABINE
     Dosage: ON 06 SEP 2021, 27 SEP 2021. ON DAY 1
     Dates: start: 20210906
  9. OXALIPLATIN [Concomitant]
     Active Substance: OXALIPLATIN
     Indication: Diffuse large B-cell lymphoma
     Dosage: FOR 3 CYCLES
     Dates: end: 20180515
  10. OXALIPLATIN [Concomitant]
     Active Substance: OXALIPLATIN
     Dosage: ON 06 SEP 2021, 27 SEP 2021. ON DAY 1
     Dates: start: 20210906
  11. DEXAMETHASONE [Concomitant]
     Active Substance: DEXAMETHASONE
     Indication: Diffuse large B-cell lymphoma
  12. LENALIDOMIDE [Concomitant]
     Active Substance: LENALIDOMIDE
     Indication: Diffuse large B-cell lymphoma
  13. LENALIDOMIDE [Concomitant]
     Active Substance: LENALIDOMIDE
     Dosage: ON 06 SEP 2021, 27 SEP 2021. FROM DAY 1 TO DAY 7
     Dates: start: 20210906
  14. PENPULIMAB [Concomitant]
     Active Substance: PENPULIMAB
     Indication: Diffuse large B-cell lymphoma
     Dosage: ON 06 SEP 2021, 27 SEP 2021. ON DAY 2
     Dates: start: 20210906
  15. ETOPOSIDE [Concomitant]
     Active Substance: ETOPOSIDE
     Indication: Diffuse large B-cell lymphoma
     Dosage: ON 13 OCT 2021, 03 NOV 2021. FROM DAY 1 TO DAY 3
     Dates: start: 20211013
  16. IFOSFAMIDE [Concomitant]
     Active Substance: IFOSFAMIDE
     Indication: Diffuse large B-cell lymphoma
     Dosage: ON 13 OCT 2021, 03 NOV 2021. FROM DAY 1 TO DAY 3
     Dates: start: 20211013
  17. GAZYVA [Concomitant]
     Active Substance: OBINUTUZUMAB
     Indication: Diffuse large B-cell lymphoma
     Route: 042
     Dates: start: 20211013

REACTIONS (8)
  - Lymphoma [Unknown]
  - Haemophagocytic lymphohistiocytosis [Unknown]
  - Drug intolerance [Unknown]
  - Asthenia [Unknown]
  - Pyrexia [Unknown]
  - Pleural effusion [Unknown]
  - Blood bilirubin increased [Recovered/Resolved]
  - Drug ineffective [Unknown]

NARRATIVE: CASE EVENT DATE: 20210801
